FAERS Safety Report 9347732 (Version 1)
Quarter: 2013Q2

REPORT INFORMATION
  Report Type: Spontaneous
  Country: US (occurrence: US)
  Receive Date: 20130614
  Receipt Date: 20130614
  Transmission Date: 20140414
  Serious: No
  Sender: FDA-Public Use
  Company Number: US-PFIZER INC-2013176746

PATIENT
  Age: 84 Year
  Sex: Female

DRUGS (2)
  1. FLAGYL [Suspect]
     Dosage: UNK
     Route: 042
  2. LEVAQUIN [Suspect]
     Dosage: UNK
     Route: 042

REACTIONS (5)
  - Pain [Unknown]
  - Crying [Unknown]
  - Chills [Unknown]
  - Tremor [Unknown]
  - Insomnia [Unknown]
